FAERS Safety Report 20490245 (Version 1)
Quarter: 2022Q1

REPORT INFORMATION
  Report Type: Spontaneous
  Country: US (occurrence: None)
  Receive Date: 20220217
  Receipt Date: 20220217
  Transmission Date: 20220424
  Serious: No
  Sender: FDA-Public Use
  Company Number: None

PATIENT
  Age: 37 Year
  Sex: Male

DRUGS (1)
  1. REGEN-COV [Suspect]
     Active Substance: CASIRIVIMAB\IMDEVIMAB
     Indication: Product used for unknown indication
     Route: 030

REACTIONS (6)
  - Wrong product administered [None]
  - Headache [None]
  - Back pain [None]
  - Muscle tightness [None]
  - Paraesthesia [None]
  - Chest discomfort [None]

NARRATIVE: CASE EVENT DATE: 20220210
